FAERS Safety Report 4843820-1 (Version None)
Quarter: 2005Q4

REPORT INFORMATION
  Report Type: 
  Country: None (occurrence: None)
  Receive Date: 20051202
  Receipt Date: 20030425
  Transmission Date: 20060501
  Serious: Yes (Life-Threatening)
  Sender: FDA-Public Use
  Company Number: JP-GLAXOSMITHKLINE-B0298242A

PATIENT
  Age: 25 Year
  Sex: Female

DRUGS (3)
  1. FLOLAN [Suspect]
     Indication: PULMONARY HYPERTENSION
     Route: 042
     Dates: start: 20030315, end: 20030427
  2. DOPAMINE HCL [Concomitant]
     Indication: PULMONARY HYPERTENSION
     Dates: start: 20030314, end: 20030519
  3. DOBUTAMINE HCL [Concomitant]
     Indication: PULMONARY HYPERTENSION
     Dates: start: 20030314, end: 20030610

REACTIONS (4)
  - CHEST X-RAY ABNORMAL [None]
  - COUGH [None]
  - INTERSTITIAL LUNG DISEASE [None]
  - LYMPHOCYTE STIMULATION TEST POSITIVE [None]
